FAERS Safety Report 6061718-0 (Version None)
Quarter: 2009Q1

REPORT INFORMATION
  Report Type: 
  Country: None (occurrence: None)
  Receive Date: 20090202
  Receipt Date: 20090126
  Transmission Date: 20090719
  Serious: Yes (Life-Threatening, Other)
  Sender: FDA-Public Use
  Company Number: FI-WYE-G02005208

PATIENT
  Sex: Male
  Weight: 11 kg

DRUGS (10)
  1. REFACTO [Suspect]
     Indication: FACTOR VIII DEFICIENCY
     Route: 042
     Dates: start: 20080610, end: 20080611
  2. REFACTO [Suspect]
     Route: 042
     Dates: start: 20080623, end: 20080623
  3. REFACTO [Suspect]
     Route: 042
     Dates: start: 20080625, end: 20080701
  4. REFACTO [Suspect]
     Route: 042
     Dates: start: 20080702, end: 20080704
  5. REFACTO [Suspect]
     Route: 042
     Dates: start: 20080707, end: 20080707
  6. REFACTO [Suspect]
     Route: 042
     Dates: start: 20080709, end: 20080709
  7. REFACTO [Suspect]
     Route: 042
     Dates: start: 20080711, end: 20080711
  8. REFACTO [Suspect]
     Route: 042
     Dates: start: 20080713, end: 20080714
  9. REFACTO [Suspect]
     Route: 042
     Dates: start: 20080716, end: 20080721
  10. REFACTO [Suspect]
     Route: 042
     Dates: start: 20080819, end: 20080820

REACTIONS (1)
  - FACTOR VIII INHIBITION [None]
